FAERS Safety Report 6541153-9 (Version None)
Quarter: 2010Q1

REPORT INFORMATION
  Report Type: 
  Country: None (occurrence: None)
  Receive Date: 20100118
  Receipt Date: 20100114
  Transmission Date: 20100710
  Serious: Yes (Congenital Anomaly)
  Sender: FDA-Public Use
  Company Number: A0836766A

PATIENT
  Sex: Male
  Weight: 3 kg

DRUGS (7)
  1. PAXIL [Suspect]
  2. ALCOHOL [Suspect]
  3. ELAVIL [Concomitant]
  4. TOBACCO [Concomitant]
  5. TYLENOL W/ CODEINE NO. 3 [Concomitant]
  6. COCAINE [Concomitant]
  7. MARIJUANA [Concomitant]

REACTIONS (7)
  - ACROCHORDON [None]
  - COMPLEX PARTIAL SEIZURES [None]
  - DRUG EXPOSURE DURING PREGNANCY [None]
  - DYSMORPHISM [None]
  - ENCEPHALOPATHY [None]
  - FOETAL ALCOHOL SYNDROME [None]
  - KIDNEY SMALL [None]
